FAERS Safety Report 16758114 (Version 1)
Quarter: 2019Q3

REPORT INFORMATION
  Report Type: Report from Study
  Country: US (occurrence: US)
  Receive Date: 20190830
  Receipt Date: 20190830
  Transmission Date: 20191005
  Serious: Yes (Other)
  Sender: FDA-Public Use
  Company Number: US-BIOGEN-2019BI00689044

PATIENT
  Age: 45 Year
  Sex: Female

DRUGS (1)
  1. TYSABRI [Suspect]
     Active Substance: NATALIZUMAB
     Indication: MULTIPLE SCLEROSIS
     Route: 050
     Dates: start: 20171130, end: 20181221

REACTIONS (7)
  - Memory impairment [Unknown]
  - Stress [Unknown]
  - Retinal detachment [Unknown]
  - Ophthalmic herpes zoster [Unknown]
  - Decreased immune responsiveness [Unknown]
  - Scar [Unknown]
  - Visual impairment [Unknown]

NARRATIVE: CASE EVENT DATE: 201811
